FAERS Safety Report 8025472-5 (Version None)
Quarter: 2012Q1

REPORT INFORMATION
  Report Type: 
  Country: None (occurrence: None)
  Receive Date: 20120105
  Receipt Date: 20111228
  Transmission Date: 20120608
  Serious: Yes (Death, Hospitalization, Other)
  Sender: FDA-Public Use
  Company Number: PH-BAXTER-2011BH040507

PATIENT
  Sex: Male

DRUGS (2)
  1. DIANEAL [Suspect]
     Route: 033
     Dates: start: 20111210, end: 20111214
  2. DIANEAL [Suspect]
     Indication: PERITONEAL DIALYSIS
     Route: 033
     Dates: start: 20111210, end: 20111214

REACTIONS (6)
  - RENAL FAILURE CHRONIC [None]
  - SLEEP DISORDER [None]
  - SEPTIC ENCEPHALOPATHY [None]
  - SEPTIC SHOCK [None]
  - PNEUMONIA [None]
  - APHAGIA [None]
